FAERS Safety Report 19798874 (Version 2)
Quarter: 2021Q3

REPORT INFORMATION
  Report Type: Spontaneous
  Country: US (occurrence: US)
  Receive Date: 20210907
  Receipt Date: 20210916
  Transmission Date: 20211014
  Serious: No
  Sender: FDA-Public Use
  Company Number: US-AMGEN-USASP2021136645

PATIENT
  Age: 49 Year
  Sex: Female

DRUGS (2)
  1. OLUMIANT [Concomitant]
     Active Substance: BARICITINIB
     Dosage: UNK
  2. OTEZLA [Suspect]
     Active Substance: APREMILAST
     Indication: PSORIASIS
     Dosage: 30 MILLIGRAM, QD
     Route: 048
     Dates: start: 20180202

REACTIONS (2)
  - Psoriasis [Not Recovered/Not Resolved]
  - Product supply issue [Not Recovered/Not Resolved]
